FAERS Safety Report 21313598 (Version 3)
Quarter: 2022Q4

REPORT INFORMATION
  Report Type: Spontaneous
  Country: US (occurrence: US)
  Receive Date: 20220909
  Receipt Date: 20221128
  Transmission Date: 20230113
  Serious: Yes (Other)
  Sender: FDA-Public Use
  Company Number: US-HALEON-USCH2022AMR032422

PATIENT

DRUGS (8)
  1. FLUTICASONE [Suspect]
     Active Substance: FLUTICASONE
     Indication: Product used for unknown indication
     Dosage: UNK
  2. NUCALA [Suspect]
     Active Substance: MEPOLIZUMAB
     Indication: Rhinitis
     Dosage: 300 MG(3 INJECTIONS EVERY 4 WEEKS)
     Dates: start: 2022
  3. NUCALA [Suspect]
     Active Substance: MEPOLIZUMAB
     Indication: Nasal polyps
  4. NUCALA [Suspect]
     Active Substance: MEPOLIZUMAB
     Indication: Asthma
  5. NUCALA [Suspect]
     Active Substance: MEPOLIZUMAB
     Indication: Eosinophilic granulomatosis with polyangiitis
  6. SODIUM CHLORIDE [Suspect]
     Active Substance: SODIUM CHLORIDE
     Indication: Product used for unknown indication
     Dosage: UNK
  7. ADVAIR HFA [Suspect]
     Active Substance: FLUTICASONE PROPIONATE\SALMETEROL XINAFOATE
     Indication: Product used for unknown indication
     Dosage: UNK
  8. BUDESONIDE [Suspect]
     Active Substance: BUDESONIDE
     Indication: Nasal congestion
     Dosage: UNK

REACTIONS (15)
  - Paranasal sinus inflammation [Unknown]
  - Nasal discharge discolouration [Unknown]
  - Nasal congestion [Not Recovered/Not Resolved]
  - Rhinitis [Unknown]
  - Polyp [Unknown]
  - Pain [Unknown]
  - Back pain [Unknown]
  - Fatigue [Unknown]
  - Rhinorrhoea [Unknown]
  - Oral candidiasis [Unknown]
  - Condition aggravated [Unknown]
  - Dyspnoea [Unknown]
  - Sleep disorder [Unknown]
  - Stress [Unknown]
  - Eosinophil count decreased [Unknown]

NARRATIVE: CASE EVENT DATE: 20220101
